FAERS Safety Report 10239367 (Version 1)
Quarter: 2014Q2

REPORT INFORMATION
  Report Type: Spontaneous
  Country: US (occurrence: None)
  Receive Date: 20140613
  Receipt Date: 20140613
  Transmission Date: 20141212
  Serious: No
  Sender: FDA-Public Use
  Company Number: None

PATIENT
  Age: 42 Year
  Sex: Female
  Weight: 72.58 kg

DRUGS (1)
  1. LEVOTHYROXIN [Suspect]
     Route: 048
     Dates: start: 20130213, end: 20130903

REACTIONS (5)
  - Irritability [None]
  - Hallucination, auditory [None]
  - Choking [None]
  - Foreign body [None]
  - Refusal of treatment by patient [None]
